FAERS Safety Report 4969412-1 (Version None)
Quarter: 2006Q2

REPORT INFORMATION
  Report Type: 
  Country: None (occurrence: None)
  Receive Date: 20060405
  Receipt Date: 20060307
  Transmission Date: 20061013
  Serious: Yes (Hospitalization)
  Sender: FDA-Public Use
  Company Number: 2006VX000354

PATIENT
  Age: 42 Year
  Sex: Female

DRUGS (3)
  1. INTERFERON ALFACON-1 [Suspect]
     Indication: HEPATITIS C
     Dosage: 15 UG; QD; SC
     Route: 058
     Dates: start: 20051206, end: 20060306
  2. RIBAVIRIN [Concomitant]
  3. PROZAC [Concomitant]

REACTIONS (6)
  - ARTERIAL DISORDER [None]
  - CEREBROVASCULAR ACCIDENT [None]
  - HYPERTHYROIDISM [None]
  - PALPITATIONS [None]
  - THYROIDITIS [None]
  - TRANSIENT ISCHAEMIC ATTACK [None]
